FAERS Safety Report 22074169 (Version 2)
Quarter: 2023Q1

REPORT INFORMATION
  Report Type: Spontaneous
  Country: US (occurrence: US)
  Receive Date: 20230308
  Receipt Date: 20230323
  Transmission Date: 20230418
  Serious: Yes (Other)
  Sender: FDA-Public Use
  Company Number: US-BIOCODEX2-2022001524

PATIENT
  Age: 3 Year
  Sex: Female
  Weight: 17.1 kg

DRUGS (10)
  1. DIACOMIT [Suspect]
     Active Substance: STIRIPENTOL
     Indication: Severe myoclonic epilepsy of infancy
     Dosage: 500 MG BY MOUTH TWICE DAILY.
     Route: 048
     Dates: start: 20221019
  2. DIACOMIT [Suspect]
     Active Substance: STIRIPENTOL
     Indication: Severe myoclonic epilepsy of infancy
     Dosage: 500 MG TWICE DAILY
     Route: 048
     Dates: start: 20221020, end: 20230303
  3. PHENOBARBITAL [Concomitant]
     Active Substance: PHENOBARBITAL
     Indication: Seizure
     Route: 048
  4. EPIDIOLEX [Concomitant]
     Active Substance: CANNABIDIOL
     Indication: Seizure
     Route: 048
  5. ZONEGRAN [Concomitant]
     Active Substance: ZONISAMIDE
     Indication: Seizure
     Route: 048
  6. SODIUM BICARBONATE [Concomitant]
     Active Substance: SODIUM BICARBONATE
     Indication: Ketogenic diet
     Route: 048
  7. CARNITOR [Concomitant]
     Active Substance: LEVOCARNITINE
     Indication: Ketogenic diet
     Route: 048
  8. MAGNESIUM [Concomitant]
     Active Substance: MAGNESIUM
     Indication: Constipation
     Route: 048
  9. MIRALAX [Concomitant]
     Active Substance: POLYETHYLENE GLYCOL 3350
     Indication: Constipation
     Dosage: ONGOING
     Route: 048
  10. LATUDA [Concomitant]
     Active Substance: LURASIDONE HYDROCHLORIDE
     Indication: Product used for unknown indication
     Route: 065

REACTIONS (13)
  - Product use in unapproved indication [Unknown]
  - Weight decreased [Unknown]
  - Decreased appetite [Unknown]
  - Product preparation error [Unknown]
  - Urinary tract infection [Unknown]
  - Eating disorder [Recovering/Resolving]
  - Seizure [Recovering/Resolving]
  - Product dose omission issue [Unknown]
  - Speech disorder [Unknown]
  - Cognitive disorder [Unknown]
  - Behaviour disorder [Unknown]
  - Change in seizure presentation [Unknown]
  - Drug ineffective [Unknown]
